FAERS Safety Report 4351639-3 (Version None)
Quarter: 2004Q2

REPORT INFORMATION
  Report Type: 
  Country: None (occurrence: None)
  Receive Date: 20040429
  Receipt Date: 20040311
  Transmission Date: 20050107
  Serious: No
  Sender: FDA-Public Use
  Company Number: 2004-114359-NL

PATIENT
  Age: 36 Year
  Sex: Female
  Weight: 64 kg

DRUGS (3)
  1. NUVARING [Suspect]
     Indication: ENDOMETRIOSIS
     Dosage: DF DAILY VAGINAL
     Route: 067
     Dates: start: 20040209
  2. NUVARING [Suspect]
     Indication: MENSTRUATION IRREGULAR
     Dosage: DF DAILY VAGINAL
     Route: 067
     Dates: start: 20040209
  3. UNSPECIFIED CHOLESTEROL MEDICATION [Concomitant]

REACTIONS (4)
  - GENITAL BURNING SENSATION [None]
  - GENITAL INFECTION BACTERIAL [None]
  - VAGINAL MYCOSIS [None]
  - VULVOVAGINAL DISCOMFORT [None]
